FAERS Safety Report 10979455 (Version 2)
Quarter: 2015Q2

REPORT INFORMATION
  Report Type: Report from Study
  Country: BR (occurrence: BR)
  Receive Date: 20150402
  Receipt Date: 20150617
  Transmission Date: 20150821
  Serious: Yes (Death, Hospitalization)
  Sender: FDA-Public Use
  Company Number: BR-BAYER-2015-066446

PATIENT
  Age: 63 Year
  Sex: Male
  Weight: 70 kg

DRUGS (1)
  1. NEXAVAR [Suspect]
     Active Substance: SORAFENIB
     Indication: HEPATIC CANCER
     Dosage: 400 MG, BID
     Route: 048
     Dates: start: 20141114, end: 201411

REACTIONS (12)
  - Asthenia [Not Recovered/Not Resolved]
  - Vomiting [None]
  - Abdominal pain [None]
  - Nausea [None]
  - Decreased appetite [None]
  - Hepatic cirrhosis [Fatal]
  - Sepsis [Fatal]
  - Hepatocellular carcinoma [Fatal]
  - Diarrhoea [None]
  - Weight decreased [None]
  - Pneumonia [Fatal]
  - Eating disorder [Not Recovered/Not Resolved]

NARRATIVE: CASE EVENT DATE: 20141116
